FAERS Safety Report 9290801 (Version 2)
Quarter: 2013Q2

REPORT INFORMATION
  Report Type: Spontaneous
  Country: US (occurrence: US)
  Receive Date: 20130515
  Receipt Date: 20130530
  Transmission Date: 20140414
  Serious: Yes (Hospitalization, Other)
  Sender: FDA-Public Use
  Company Number: US-BAXTER-2013BAX017287

PATIENT
  Age: 76 Year
  Sex: Female

DRUGS (5)
  1. DIANEAL LOW CALCIUM [Suspect]
     Indication: PERITONEAL DIALYSIS
     Route: 033
  2. DIANEAL LOW CALCIUM [Suspect]
     Indication: PERITONEAL DIALYSIS
     Route: 033
     Dates: start: 201208
  3. DIANEAL LOW CALCIUM (ULTRABAG) [Suspect]
     Indication: PERITONEAL DIALYSIS
     Route: 033
  4. DIANEAL LOW CALCIUM (ULTRABAG) [Suspect]
     Indication: PERITONEAL DIALYSIS
     Route: 033
     Dates: start: 201208
  5. DIANEAL LOW CALCIUM (ULTRABAG) [Suspect]
     Indication: PERITONEAL DIALYSIS
     Route: 033
     Dates: start: 201208, end: 201304

REACTIONS (7)
  - Blood glucose increased [Recovering/Resolving]
  - Clostridium difficile infection [Recovered/Resolved]
  - Blood glucose fluctuation [Recovering/Resolving]
  - Localised infection [Recovered/Resolved]
  - Fluid retention [Recovered/Resolved]
  - Hypotension [Recovering/Resolving]
  - Wound [Recovered/Resolved]
